FAERS Safety Report 19429692 (Version 2)
Quarter: 2025Q3

REPORT INFORMATION
  Report Type: Spontaneous
  Country: EU (occurrence: EU)
  Receive Date: 20210617
  Receipt Date: 20250722
  Transmission Date: 20251021
  Serious: Yes (Disabling, Other)
  Sender: NOVARTIS
  Company Number: EU-NOVARTISPH-NVSC2021NO131927

PATIENT
  Age: 54 Year
  Sex: Male

DRUGS (1)
  1. ZOMETA [Suspect]
     Active Substance: ZOLEDRONIC ACID
     Indication: Plasma cell myeloma
     Route: 065
     Dates: start: 20190625, end: 20201222

REACTIONS (3)
  - Osteonecrosis [Unknown]
  - Arthralgia [Unknown]
  - Hip fracture [Not Recovered/Not Resolved]

NARRATIVE: CASE EVENT DATE: 20200930
